FAERS Safety Report 9383338 (Version 1)
Quarter: 2013Q3

REPORT INFORMATION
  Report Type: Spontaneous
  Country: US (occurrence: US)
  Receive Date: 20130704
  Receipt Date: 20130704
  Transmission Date: 20140515
  Serious: No
  Sender: FDA-Public Use
  Company Number: US-ASTRAZENECA-2013SE41318

PATIENT
  Age: 78 Year
  Sex: Female
  Weight: 61.2 kg

DRUGS (3)
  1. PULMICORT FLEXHALER [Suspect]
     Indication: ASTHMA
     Dosage: 180 MCG 1 PUFF BID
     Route: 055
     Dates: start: 20130530
  2. STEROIDS [Concomitant]
     Indication: CHEST DISCOMFORT
  3. STEROIDS [Concomitant]
     Indication: COUGH

REACTIONS (5)
  - Chest discomfort [Not Recovered/Not Resolved]
  - Weight decreased [Not Recovered/Not Resolved]
  - Cough [Not Recovered/Not Resolved]
  - Oropharyngeal pain [Recovered/Resolved]
  - Off label use [Unknown]
